FAERS Safety Report 6906550-8 (Version None)
Quarter: 2010Q3

REPORT INFORMATION
  Report Type: 
  Country: None (occurrence: None)
  Receive Date: 20100804
  Receipt Date: 20100726
  Transmission Date: 20110219
  Serious: Yes (Hospitalization)
  Sender: FDA-Public Use
  Company Number: US-BAYER-201023500NA

PATIENT
  Age: 21 Year
  Sex: Female
  Weight: 14 kg

DRUGS (3)
  1. YAZ [Suspect]
     Indication: POLYCYSTIC OVARIES
     Route: 048
     Dates: start: 20070101
  2. LO-ESTREN [Concomitant]
     Indication: PRODUCT USED FOR UNKNOWN INDICATION
  3. PEPCID [Concomitant]
     Indication: DYSPEPSIA
     Route: 048
     Dates: start: 20060101, end: 20090601

REACTIONS (3)
  - BACK PAIN [None]
  - DYSPEPSIA [None]
  - SPLENIC CYST [None]
